FAERS Safety Report 4426574-2 (Version None)
Quarter: 2004Q3

REPORT INFORMATION
  Report Type: 
  Country: None (occurrence: None)
  Receive Date: 20040812
  Receipt Date: 20040812
  Transmission Date: 20050211
  Serious: Yes (Life-Threatening)
  Sender: FDA-Public Use
  Company Number: None

PATIENT
  Sex: Male

DRUGS (2)
  1. VIAGRA [Suspect]
     Indication: ERECTILE DYSFUNCTION
     Dosage: ORAL
     Route: 048
     Dates: start: 20040723, end: 20040723
  2. NEXIUM [Concomitant]

REACTIONS (3)
  - CHEST PAIN [None]
  - EPIGASTRIC DISCOMFORT [None]
  - HYPERHIDROSIS [None]
